FAERS Safety Report 8049110-0 (Version None)
Quarter: 2012Q1

REPORT INFORMATION
  Report Type: 
  Country: None (occurrence: None)
  Receive Date: 20120117
  Receipt Date: 20120111
  Transmission Date: 20120608
  Serious: Yes (Life-Threatening, Hospitalization, Other)
  Sender: FDA-Public Use
  Company Number: DE-JNJFOC-20120101099

PATIENT
  Sex: Male

DRUGS (5)
  1. LYRICA [Concomitant]
     Route: 048
  2. ASPIRIN [Concomitant]
     Route: 048
  3. ZYTIGA [Suspect]
     Route: 048
     Dates: start: 20110101, end: 20111216
  4. ZYTIGA [Suspect]
     Indication: PROSTATE CANCER METASTATIC
     Route: 048
     Dates: start: 20111115, end: 20110101
  5. PANTOPRAZOLE [Concomitant]
     Route: 048

REACTIONS (1)
  - PULMONARY EMBOLISM [None]
